FAERS Safety Report 4607955-0 (Version None)
Quarter: 2005Q2

REPORT INFORMATION
  Report Type: 
  Country: None (occurrence: None)
  Receive Date: 20050228
  Receipt Date: 20041216
  Transmission Date: 20051028
  Serious: No
  Sender: FDA-Public Use
  Company Number: FABR-10919

PATIENT
  Age: 58 Year
  Sex: Male
  Weight: 70.3075 kg

DRUGS (2)
  1. FABRAZYME [Suspect]
     Indication: FABRY'S DISEASE
     Dosage: 70 MG Q2WKS IV
     Route: 042
     Dates: start: 20040907
  2. PREDNISONE [Concomitant]

REACTIONS (2)
  - DEAFNESS UNILATERAL [None]
  - TINNITUS [None]
